FAERS Safety Report 7816205-3 (Version None)
Quarter: 2011Q4

REPORT INFORMATION
  Report Type: 
  Country: None (occurrence: None)
  Receive Date: 20111015
  Receipt Date: 20111003
  Transmission Date: 20120403
  Serious: Yes (Hospitalization)
  Sender: FDA-Public Use
  Company Number: GB-ROCHE-1001558

PATIENT
  Sex: Female

DRUGS (3)
  1. BONIVA [Suspect]
     Indication: METASTATIC PAIN
     Dates: start: 20081001, end: 20110801
  2. TAMOXIFEN CITRATE [Concomitant]
     Route: 048
     Dates: start: 20090101
  3. VENLAFAXINE [Concomitant]
     Dates: start: 20110629

REACTIONS (1)
  - DUODENAL ULCER PERFORATION [None]
